FAERS Safety Report 22129457 (Version 2)
Quarter: 2023Q1

REPORT INFORMATION
  Report Type: Report from Study
  Country: AU (occurrence: AU)
  Receive Date: 20230323
  Receipt Date: 20230330
  Transmission Date: 20230418
  Serious: Yes (Other)
  Sender: FDA-Public Use
  Company Number: AU-JNJFOC-20230334344

PATIENT
  Age: 53 Year
  Sex: Female

DRUGS (4)
  1. SPRAVATO [Suspect]
     Active Substance: ESKETAMINE
     Indication: Major depression
     Dates: start: 202211
  2. SPRAVATO [Suspect]
     Active Substance: ESKETAMINE
     Dosage: MAINTENANCE REGIMEN
  3. SPRAVATO [Suspect]
     Active Substance: ESKETAMINE
  4. SPRAVATO [Suspect]
     Active Substance: ESKETAMINE
     Dates: start: 202301, end: 202302

REACTIONS (6)
  - Suicidal ideation [Unknown]
  - Depression [Unknown]
  - Hypertension [Unknown]
  - Dissociation [Unknown]
  - Sedation [Unknown]
  - Product dose omission issue [Unknown]

NARRATIVE: CASE EVENT DATE: 20221101
